FAERS Safety Report 13948603 (Version 1)
Quarter: 2017Q3

REPORT INFORMATION
  Report Type: Spontaneous
  Country: CA (occurrence: CA)
  Receive Date: 20170908
  Receipt Date: 20170908
  Transmission Date: 20171128
  Serious: Yes (Death)
  Sender: FDA-Public Use
  Company Number: CA-TEVA-804693ACC

PATIENT
  Age: 49 Year
  Sex: Female

DRUGS (3)
  1. QUETIAPINE. [Suspect]
     Active Substance: QUETIAPINE
     Indication: SCHIZOPHRENIA
  2. RISPERIDONE. [Concomitant]
     Active Substance: RISPERIDONE
  3. ZOPICLONE [Suspect]
     Active Substance: ZOPICLONE
     Indication: INSOMNIA

REACTIONS (3)
  - Suicidal behaviour [Fatal]
  - Completed suicide [Fatal]
  - Intentional overdose [Fatal]
